FAERS Safety Report 5012219-X (Version None)
Quarter: 2006Q2

REPORT INFORMATION
  Report Type: 
  Country: None (occurrence: None)
  Receive Date: 20060410
  Receipt Date: 20060124
  Transmission Date: 20061013
  Serious: No
  Sender: FDA-Public Use
  Company Number: 06P-163-0323235-00

PATIENT
  Sex: Female

DRUGS (1)
  1. DEPAKOTE [Suspect]

REACTIONS (1)
  - PANCREATITIS ACUTE [None]
